FAERS Safety Report 9355092 (Version 1)
Quarter: 2013Q2

REPORT INFORMATION
  Report Type: Spontaneous
  Country: US (occurrence: US)
  Receive Date: 20130619
  Receipt Date: 20130619
  Transmission Date: 20140414
  Serious: No
  Sender: FDA-Public Use
  Company Number: US-009507513-1306USA006963

PATIENT
  Sex: Female
  Weight: 76.19 kg

DRUGS (4)
  1. VICTRELIS [Suspect]
     Dosage: 800 MG, TID
     Route: 048
  2. PEGASYS [Suspect]
  3. RIBAVIRIN [Suspect]
     Route: 048
  4. HYDROCHLOROTHIAZIDE (+) VALSARTAN [Concomitant]
     Dosage: 320-25MG

REACTIONS (4)
  - Skin discolouration [Unknown]
  - Pruritus [Unknown]
  - Discomfort [Unknown]
  - Full blood count decreased [Unknown]
